FAERS Safety Report 10142296 (Version 1)
Quarter: 2014Q2

REPORT INFORMATION
  Report Type: Spontaneous
  Country: US (occurrence: US)
  Receive Date: 20140429
  Receipt Date: 20140429
  Transmission Date: 20141212
  Serious: Yes (Hospitalization)
  Sender: FDA-Public Use
  Company Number: CHPA2014US005835

PATIENT
  Age: 83 Year
  Sex: Female

DRUGS (2)
  1. PREVACID 24HR 15MG [Suspect]
     Indication: ABDOMINAL DISCOMFORT
     Dosage: 15 MG, QD
     Dates: start: 20140424
  2. PREVACID 24HR 15MG [Suspect]
     Indication: OFF LABEL USE
     Dosage: UNK
     Dates: start: 201401, end: 2014

REACTIONS (4)
  - Fall [Recovered/Resolved]
  - Bone pain [Recovering/Resolving]
  - Gait disturbance [Unknown]
  - Inappropriate schedule of drug administration [Unknown]
